FAERS Safety Report 25984990 (Version 1)
Quarter: 2025Q4

REPORT INFORMATION
  Report Type: Spontaneous
  Country: CN (occurrence: CN)
  Receive Date: 20251031
  Receipt Date: 20251031
  Transmission Date: 20260117
  Serious: Yes (Other)
  Sender: Kenvue
  Company Number: CN-KENVUE-20251010251

PATIENT

DRUGS (1)
  1. CHILDRENS MOTRIN [Suspect]
     Active Substance: IBUPROFEN
     Indication: Pyrexia
     Dosage: 3 MILLILITER, SINGLE (TOOK ONCE ONLY)
     Route: 048
     Dates: start: 20251004

REACTIONS (4)
  - Restlessness [Recovering/Resolving]
  - Incorrect dose administered [Unknown]
  - Periorbital oedema [Recovering/Resolving]
  - Drug hypersensitivity [Recovering/Resolving]

NARRATIVE: CASE EVENT DATE: 20251004
